FAERS Safety Report 25290209 (Version 1)
Quarter: 2025Q2

REPORT INFORMATION
  Report Type: Spontaneous
  Country: IT (occurrence: IT)
  Receive Date: 20250510
  Receipt Date: 20250510
  Transmission Date: 20250717
  Serious: Yes (Hospitalization)
  Sender: ALEXION PHARMACEUTICALS
  Company Number: IT-AstraZeneca-CH-00863690A

PATIENT

DRUGS (2)
  1. TAGRISSO [Suspect]
     Active Substance: OSIMERTINIB
     Indication: Non-small cell lung cancer metastatic
  2. TAGRISSO [Suspect]
     Active Substance: OSIMERTINIB
     Indication: Glomerular filtration rate

REACTIONS (1)
  - Thrombosis [Recovered/Resolved]
